FAERS Safety Report 6730951-4 (Version None)
Quarter: 2010Q2

REPORT INFORMATION
  Report Type: 
  Country: None (occurrence: None)
  Receive Date: 20100518
  Receipt Date: 20100505
  Transmission Date: 20101027
  Serious: Yes (Other)
  Sender: FDA-Public Use
  Company Number: GR-BAYER-201024377GPV

PATIENT
  Age: 48 Year
  Sex: Male

DRUGS (3)
  1. IOPROMIDE [Suspect]
     Indication: UROGRAM
     Route: 042
  2. CLOPIDOGREL [Concomitant]
     Indication: DRUG USE FOR UNKNOWN INDICATION
  3. ASPIRIN [Concomitant]
     Indication: DRUG USE FOR UNKNOWN INDICATION

REACTIONS (13)
  - ACUTE MYOCARDIAL INFARCTION [None]
  - ASTHENIA [None]
  - CHEST DISCOMFORT [None]
  - CONTRAST MEDIA ALLERGY [None]
  - DIZZINESS [None]
  - HYPERHIDROSIS [None]
  - HYPOAESTHESIA [None]
  - KOUNIS SYNDROME [None]
  - MALAISE [None]
  - MAST CELL DEGRANULATION TEST [None]
  - PAIN IN EXTREMITY [None]
  - PALLOR [None]
  - PRURITUS GENERALISED [None]
